FAERS Safety Report 7005002-7 (Version None)
Quarter: 2010Q3

REPORT INFORMATION
  Report Type: 
  Country: None (occurrence: None)
  Receive Date: 20100921
  Receipt Date: 20100920
  Transmission Date: 20110219
  Serious: Yes (Life-Threatening, Hospitalization, Disabling)
  Sender: FDA-Public Use
  Company Number: KR-BRISTOL-MYERS SQUIBB COMPANY-14747281

PATIENT
  Age: 63 Year
  Sex: Male
  Weight: 49 kg

DRUGS (2)
  1. CISPLATIN [Suspect]
     Indication: GASTROOESOPHAGEAL CANCER
     Dosage: ON DAY 1 OF CYCLE RECENT INF : 20JUL09 INTERRUPTED ON 11AUG09
     Route: 042
     Dates: start: 20090520, end: 20090720
  2. XELODA [Suspect]
     Indication: GASTROOESOPHAGEAL CANCER
     Dosage: ON DAY 1-15 RECENT INF : 04AUG09 INTERRUPTED ON 11AUG09
     Route: 048
     Dates: start: 20090520, end: 20090804

REACTIONS (1)
  - PULMONARY EMBOLISM [None]
